FAERS Safety Report 22654351 (Version 1)
Quarter: 2023Q2

REPORT INFORMATION
  Report Type: Spontaneous
  Country: US (occurrence: None)
  Receive Date: 20230628
  Receipt Date: 20230628
  Transmission Date: 20230722
  Serious: Yes (Death)
  Sender: FDA-Public Use
  Company Number: None

PATIENT
  Age: 68 Year
  Sex: Male

DRUGS (1)
  1. ABECMA [Suspect]
     Active Substance: IDECABTAGENE VICLEUCEL
     Indication: Plasma cell myeloma refractory
     Dates: start: 20230612, end: 20230612

REACTIONS (10)
  - Cytokine release syndrome [None]
  - Immune effector cell-associated neurotoxicity syndrome [None]
  - Haemophagocytic lymphohistiocytosis [None]
  - Mental status changes [None]
  - Cardio-respiratory arrest [None]
  - Pulse absent [None]
  - Shock [None]
  - Sepsis [None]
  - Haemorrhage [None]
  - Pulseless electrical activity [None]

NARRATIVE: CASE EVENT DATE: 20230627
